FAERS Safety Report 7421696-6 (Version None)
Quarter: 2011Q2

REPORT INFORMATION
  Report Type: 
  Country: None (occurrence: None)
  Receive Date: 20110418
  Receipt Date: 20110411
  Transmission Date: 20111010
  Serious: Yes (Other)
  Sender: FDA-Public Use
  Company Number: DE-PFIZER INC-2011079313

PATIENT
  Age: 72 Year
  Sex: Female

DRUGS (1)
  1. AROMASIN [Suspect]
     Indication: BREAST CANCER FEMALE
     Dosage: UNK
     Route: 048
     Dates: start: 20110101, end: 20110301

REACTIONS (7)
  - ARTHRALGIA [None]
  - INSOMNIA [None]
  - NAUSEA [None]
  - BONE PAIN [None]
  - MYALGIA [None]
  - FATIGUE [None]
  - HYPOKINESIA [None]
